FAERS Safety Report 14068045 (Version 1)
Quarter: 2017Q4

REPORT INFORMATION
  Report Type: Spontaneous
  Country: HU (occurrence: HU)
  Receive Date: 20171010
  Receipt Date: 20171010
  Transmission Date: 20180321
  Serious: Yes (Death, Other)
  Sender: FDA-Public Use
  Company Number: HU-ROCHE-1975674

PATIENT
  Age: 72 Year
  Sex: Male

DRUGS (2)
  1. ACTILYSE [Suspect]
     Active Substance: ALTEPLASE
     Indication: PARALYSIS
  2. ACTILYSE [Suspect]
     Active Substance: ALTEPLASE
     Indication: APHASIA
     Route: 042
     Dates: start: 2009, end: 2009

REACTIONS (5)
  - General physical health deterioration [Not Recovered/Not Resolved]
  - Haemorrhage [Not Recovered/Not Resolved]
  - Death [Fatal]
  - Hypotonia [Unknown]
  - Depressed level of consciousness [Not Recovered/Not Resolved]

NARRATIVE: CASE EVENT DATE: 2009
